FAERS Safety Report 6409204-X (Version None)
Quarter: 2009Q4

REPORT INFORMATION
  Report Type: 
  Country: None (occurrence: None)
  Receive Date: 20091021
  Receipt Date: 20091016
  Transmission Date: 20100525
  Serious: Yes (Death)
  Sender: FDA-Public Use
  Company Number: PHHY2009BR44581

PATIENT
  Sex: Male

DRUGS (2)
  1. FORASEQ [Suspect]
     Dosage: 12/400 MCG
  2. EXFORGE [Suspect]
     Dosage: 160/5 MG

REACTIONS (1)
  - ROAD TRAFFIC ACCIDENT [None]
